FAERS Safety Report 5505637-4 (Version None)
Quarter: 2007Q4

REPORT INFORMATION
  Report Type: 
  Country: None (occurrence: None)
  Receive Date: 20071102
  Receipt Date: 20071023
  Transmission Date: 20080405
  Serious: Yes (Other)
  Sender: FDA-Public Use
  Company Number: US-PFIZER INC-2007069564

PATIENT
  Age: 74 Year
  Sex: Female
  Weight: 50 kg

DRUGS (8)
  1. LYRICA [Suspect]
     Indication: POST HERPETIC NEURALGIA
  2. HERBAL PREPARATION [Suspect]
     Indication: POST HERPETIC NEURALGIA
     Dates: start: 20070801, end: 20070801
  3. ACTONEL [Concomitant]
  4. LEVOXYL [Concomitant]
  5. ESTRADIOL [Concomitant]
  6. CALCIUM [Concomitant]
  7. VITAMINS [Concomitant]
  8. MECLIZINE [Concomitant]

REACTIONS (14)
  - AMNESIA [None]
  - APPETITE DISORDER [None]
  - BALANCE DISORDER [None]
  - DRUG INEFFECTIVE [None]
  - EYE PAIN [None]
  - IMPAIRED DRIVING ABILITY [None]
  - NAUSEA [None]
  - OSTEOARTHRITIS [None]
  - POLLAKIURIA [None]
  - SOMNOLENCE [None]
  - THINKING ABNORMAL [None]
  - URINE OUTPUT INCREASED [None]
  - VISION BLURRED [None]
  - WEIGHT DECREASED [None]
